FAERS Safety Report 6314821-1 (Version None)
Quarter: 2009Q3

REPORT INFORMATION
  Report Type: 
  Country: None (occurrence: None)
  Receive Date: 20090817
  Receipt Date: 20090817
  Transmission Date: 20100115
  Serious: Yes (Other)
  Sender: FDA-Public Use
  Company Number: None

PATIENT
  Age: 60 Year
  Sex: Female
  Weight: 56.6996 kg

DRUGS (1)
  1. ZICAM COLD REMEDY NASAL GE 12X [Suspect]
     Indication: INFLUENZA
     Dosage: TWO SPRAYS AS NEEDED UP TO NASAL
     Route: 045
     Dates: start: 20090419, end: 20090428

REACTIONS (3)
  - ANOSMIA [None]
  - HYPOSMIA [None]
  - PAROSMIA [None]
